FAERS Safety Report 25075578 (Version 2)
Quarter: 2025Q1

REPORT INFORMATION
  Report Type: Spontaneous
  Country: US (occurrence: US)
  Receive Date: 20250313
  Receipt Date: 20250319
  Transmission Date: 20250409
  Serious: Yes (Other)
  Sender: ELI LILLY AND COMPANY
  Company Number: US-ELI_LILLY_AND_COMPANY-US202503003942

PATIENT

DRUGS (4)
  1. TIRZEPATIDE [Suspect]
     Active Substance: TIRZEPATIDE
     Indication: Weight control
     Route: 048
     Dates: start: 202407
  2. TIRZEPATIDE [Suspect]
     Active Substance: TIRZEPATIDE
     Route: 048
  3. TIRZEPATIDE [Suspect]
     Active Substance: TIRZEPATIDE
     Route: 048
  4. TIRZEPATIDE [Suspect]
     Active Substance: TIRZEPATIDE
     Route: 048

REACTIONS (7)
  - Dumping syndrome [Unknown]
  - Loss of consciousness [Unknown]
  - Sleep disorder due to a general medical condition [Unknown]
  - Product tampering [Unknown]
  - Incorrect route of product administration [Unknown]
  - Flatulence [Unknown]
  - Eructation [Unknown]
